FAERS Safety Report 10549137 (Version 1)
Quarter: 2014Q4

REPORT INFORMATION
  Report Type: Spontaneous
  Country: US (occurrence: None)
  Receive Date: 20141016
  Receipt Date: 20141016
  Transmission Date: 20150529
  Serious: No
  Sender: FDA-Public Use
  Company Number: CABO-14004380

PATIENT
  Age: 73 Year
  Sex: Male
  Weight: 75.7 kg

DRUGS (5)
  1. COMETRIQ [Suspect]
     Active Substance: CABOZANTINIB S-MALATE
     Indication: RENAL CANCER
     Route: 048
     Dates: start: 20140529, end: 20140602
  2. ATENOLOL. [Concomitant]
     Active Substance: ATENOLOL
  3. FINASTERIDE. [Concomitant]
     Active Substance: FINASTERIDE
  4. DIGOXIN. [Concomitant]
     Active Substance: DIGOXIN
  5. XAREL TO (RIVAROXABAN) [Concomitant]

REACTIONS (8)
  - Abdominal distension [None]
  - Off label use [None]
  - Anal abscess [None]
  - Asthenia [None]
  - Nausea [None]
  - Diarrhoea [None]
  - Decreased appetite [None]
  - Dyspnoea [None]

NARRATIVE: CASE EVENT DATE: 2014
